FAERS Safety Report 7720708-X (Version None)
Quarter: 2011Q3

REPORT INFORMATION
  Report Type: 
  Country: None (occurrence: None)
  Receive Date: 20110831
  Receipt Date: 20110825
  Transmission Date: 20111222
  Serious: Yes (Death, Hospitalization, Other)
  Sender: FDA-Public Use
  Company Number: PHHY2011BR48051

PATIENT
  Sex: Female

DRUGS (3)
  1. COSOPT [Concomitant]
     Indication: GLAUCOMA
  2. DRUG THERAPY NOS [Concomitant]
  3. DIOVAN [Suspect]
     Indication: HYPERTENSION
     Dosage: 1 DF, DAILY (320 MG)
     Route: 048
     Dates: start: 20080101

REACTIONS (6)
  - YELLOW SKIN [None]
  - CARDIAC ARREST [None]
  - HEPATIC MASS [None]
  - HEPATIC FAILURE [None]
  - RESPIRATORY FAILURE [None]
  - HEPATIC NEOPLASM MALIGNANT [None]
